FAERS Safety Report 17079410 (Version 2)
Quarter: 2020Q2

REPORT INFORMATION
  Report Type: Spontaneous
  Country: IT (occurrence: IT)
  Receive Date: 20191127
  Receipt Date: 20200624
  Transmission Date: 20200713
  Serious: Yes (Other)
  Sender: FDA-Public Use
  Company Number: IT-TEVA-2019-IT-1142541

PATIENT
  Age: 47 Year
  Sex: Female

DRUGS (4)
  1. LIPOSOMAL DOXORUBICIN [Suspect]
     Active Substance: DOXORUBICIN HYDROCHLORIDE
     Indication: CHRONIC LYMPHOCYTIC LEUKAEMIA STAGE 2
     Dosage: 1 COURSE
     Route: 065
  2. FLUDARABINE [Suspect]
     Active Substance: FLUDARABINE PHOSPHATE
     Indication: CHRONIC LYMPHOCYTIC LEUKAEMIA STAGE 2
     Dosage: 6 COURSES INITIALLY
     Route: 065
  3. FLUDARABINE [Suspect]
     Active Substance: FLUDARABINE PHOSPHATE
     Dosage: 1 COURSE
     Route: 065
  4. BORTEZOMIB. [Suspect]
     Active Substance: BORTEZOMIB
     Indication: CHRONIC LYMPHOCYTIC LEUKAEMIA STAGE 2
     Dosage: 1 COURSE
     Route: 065

REACTIONS (1)
  - Bronchiolitis [Unknown]
